FAERS Safety Report 5456113-9 (Version None)
Quarter: 2007Q3

REPORT INFORMATION
  Report Type: 
  Country: None (occurrence: None)
  Receive Date: 20070918
  Receipt Date: 20070907
  Transmission Date: 20080115
  Serious: Yes (Hospitalization)
  Sender: FDA-Public Use
  Company Number: PHEH2007US10663

PATIENT
  Age: 50 Year
  Sex: Male

DRUGS (2)
  1. RITALIN [Suspect]
     Indication: ATTENTION DEFICIT/HYPERACTIVITY DISORDER
     Dosage: ^3 IN AM + 3 IN PM^
     Route: 048
  2. EFFEXOR XR [Suspect]
     Indication: MAJOR DEPRESSION

REACTIONS (3)
  - DRUG INEFFECTIVE [None]
  - HOSPITALISATION [None]
  - POOR QUALITY DRUG ADMINISTERED [None]
